FAERS Safety Report 5292030-5 (Version None)
Quarter: 2007Q2

REPORT INFORMATION
  Report Type: 
  Country: None (occurrence: None)
  Receive Date: 20070406
  Receipt Date: 20070406
  Transmission Date: 20071010
  Serious: Yes (Other)
  Sender: FDA-Public Use
  Company Number: None

PATIENT
  Age: 85 Year
  Sex: Male
  Weight: 99.7913 kg

DRUGS (1)
  1. FLOMAX [Suspect]
     Indication: URINE FLOW DECREASED
     Dosage: 0.4 MG ONCE DAILY PO
     Route: 048
     Dates: start: 20061001

REACTIONS (3)
  - FLOPPY IRIS SYNDROME [None]
  - MIOSIS [None]
  - PROCEDURAL COMPLICATION [None]
